FAERS Safety Report 14387839 (Version 2)
Quarter: 2018Q2

REPORT INFORMATION
  Report Type: Spontaneous
  Country: US (occurrence: US)
  Receive Date: 20180115
  Receipt Date: 20180601
  Transmission Date: 20180711
  Serious: Yes (Other)
  Sender: FDA-Public Use
  Company Number: US-SA-2017SA197962

PATIENT
  Age: 40 Year
  Sex: Female
  Weight: 113 kg

DRUGS (25)
  1. ARIMIDEX [Concomitant]
     Active Substance: ANASTROZOLE
     Dosage: UNK
  2. SYNTHROID [Concomitant]
     Active Substance: LEVOTHYROXINE SODIUM
  3. NEXIUM [Concomitant]
     Active Substance: ESOMEPRAZOLE MAGNESIUM
  4. HYDROCHLOROTHIAZIDE. [Concomitant]
     Active Substance: HYDROCHLOROTHIAZIDE
  5. HYDROCODONE BITARTRATE. [Concomitant]
     Active Substance: HYDROCODONE BITARTRATE
  6. TAXOTERE [Suspect]
     Active Substance: DOCETAXEL
     Dosage: UNK UNK,QCY
     Route: 051
     Dates: start: 20070309, end: 20070309
  7. TOPROL XL [Concomitant]
     Active Substance: METOPROLOL SUCCINATE
  8. VALIUM [Concomitant]
     Active Substance: DIAZEPAM
  9. HYDROCODONE [Concomitant]
     Active Substance: HYDROCODONE
  10. BENTYL [Concomitant]
     Active Substance: DICYCLOMINE HYDROCHLORIDE
  11. LOVENOX [Concomitant]
     Active Substance: ENOXAPARIN SODIUM
  12. CYMBALTA [Concomitant]
     Active Substance: DULOXETINE HYDROCHLORIDE
     Dosage: UNK
     Dates: start: 200612
  13. METOPROLOL. [Concomitant]
     Active Substance: METOPROLOL
  14. ADRIAMYCIN [DOXORUBICIN] [Concomitant]
  15. CYTOXAN [Concomitant]
     Active Substance: CYCLOPHOSPHAMIDE
  16. AROMASIN [Concomitant]
     Active Substance: EXEMESTANE
  17. TOPAMAX [Concomitant]
     Active Substance: TOPIRAMATE
  18. WELLBUTRIN [Concomitant]
     Active Substance: BUPROPION HYDROCHLORIDE
  19. LISINOPRIL. [Concomitant]
     Active Substance: LISINOPRIL
  20. POTASSIUM CHLORIDE. [Concomitant]
     Active Substance: POTASSIUM CHLORIDE
  21. TAMOXIFEN [Concomitant]
     Active Substance: TAMOXIFEN
  22. ZOLOFT [Concomitant]
     Active Substance: SERTRALINE HYDROCHLORIDE
  23. TAXOTERE [Suspect]
     Active Substance: DOCETAXEL
     Indication: BREAST CANCER FEMALE
     Dosage: UNK UNK,QCY
     Route: 051
     Dates: start: 20070105, end: 20070105
  24. BIAXIN [Concomitant]
     Active Substance: CLARITHROMYCIN
  25. WARFARIN [Concomitant]
     Active Substance: WARFARIN

REACTIONS (2)
  - Psychological trauma [Unknown]
  - Alopecia [Recovering/Resolving]

NARRATIVE: CASE EVENT DATE: 200709
